FAERS Safety Report 10084699 (Version 1)
Quarter: 2014Q2

REPORT INFORMATION
  Report Type: Spontaneous
  Country: BR (occurrence: BR)
  Receive Date: 20140417
  Receipt Date: 20140417
  Transmission Date: 20141212
  Serious: Yes (Other)
  Sender: FDA-Public Use
  Company Number: BR-GLAXOSMITHKLINE-A1069673A

PATIENT
  Sex: Male

DRUGS (3)
  1. COMBODART [Suspect]
     Indication: BENIGN PROSTATIC HYPERPLASIA
     Dosage: 1CAP PER DAY
     Route: 048
     Dates: start: 20140216
  2. ANTIDEPRESSANT [Suspect]
     Indication: DEPRESSION
     Dosage: 1TAB PER DAY
     Route: 048
  3. NIMESULIDE [Concomitant]
     Indication: OEDEMA PERIPHERAL
     Dosage: 1TAB PER DAY
     Dates: end: 20140323

REACTIONS (7)
  - Suicidal ideation [Unknown]
  - Depression [Not Recovered/Not Resolved]
  - Heart rate increased [Not Recovered/Not Resolved]
  - Decreased appetite [Not Recovered/Not Resolved]
  - Impatience [Not Recovered/Not Resolved]
  - Anxiety [Not Recovered/Not Resolved]
  - Insomnia [Not Recovered/Not Resolved]
